FAERS Safety Report 7385367-7 (Version None)
Quarter: 2011Q1

REPORT INFORMATION
  Report Type: 
  Country: None (occurrence: None)
  Receive Date: 20110330
  Receipt Date: 20101203
  Transmission Date: 20110831
  Serious: No
  Sender: FDA-Public Use
  Company Number: US-MYLANLABS-2010S1021155

PATIENT
  Age: 60 None
  Sex: Female

DRUGS (4)
  1. ALPRAZOLAM [Concomitant]
     Indication: PANIC ATTACK
  2. EMSAM [Suspect]
     Route: 062
     Dates: start: 20100901
  3. EMSAM [Suspect]
     Indication: DEPRESSION
     Dosage: CHANGED QD
     Route: 062
     Dates: start: 20100701, end: 20100901
  4. CALCIUM /04697001/ [Concomitant]

REACTIONS (5)
  - HEADACHE [None]
  - BALANCE DISORDER [None]
  - HEART RATE INCREASED [None]
  - NAUSEA [None]
  - DIZZINESS [None]
